FAERS Safety Report 20089440 (Version 1)
Quarter: 2021Q4

REPORT INFORMATION
  Report Type: Spontaneous
  Country: US (occurrence: US)
  Receive Date: 20211119
  Receipt Date: 20211119
  Transmission Date: 20220303
  Serious: Yes (Other)
  Sender: FDA-Public Use
  Company Number: US-MLMSERVICE-20211104-3206975-1

PATIENT
  Age: 42 Year
  Sex: Male

DRUGS (1)
  1. FENOFIBRATE [Suspect]
     Active Substance: FENOFIBRATE
     Indication: Hypertriglyceridaemia
     Dosage: UNK
     Route: 065

REACTIONS (2)
  - Nephropathy toxic [Recovered/Resolved]
  - Subacute kidney injury [Recovered/Resolved]
